FAERS Safety Report 23455366 (Version 1)
Quarter: 2024Q1

REPORT INFORMATION
  Report Type: Spontaneous
  Country: US (occurrence: US)
  Receive Date: 20240130
  Receipt Date: 20240130
  Transmission Date: 20240410
  Serious: Yes (Death, Other)
  Sender: FDA-Public Use
  Company Number: US-LUPIN PHARMACEUTICALS INC.-2024-00457

PATIENT
  Age: 43 Year
  Sex: Female

DRUGS (1)
  1. SEVELAMER CARBONATE [Suspect]
     Active Substance: SEVELAMER CARBONATE
     Indication: Hyperphosphataemia
     Dosage: UNK
     Dates: start: 20221013

REACTIONS (6)
  - Acute lung injury [Fatal]
  - Pulmonary alveolar haemorrhage [Fatal]
  - Gastrointestinal necrosis [Fatal]
  - Bronchial artery aneurysm [Fatal]
  - Aneurysm ruptured [Fatal]
  - Aorto-oesophageal fistula [Fatal]

NARRATIVE: CASE EVENT DATE: 20220101
